FAERS Safety Report 19975565 (Version 1)
Quarter: 2021Q4

REPORT INFORMATION
  Report Type: Spontaneous
  Country: FR (occurrence: FR)
  Receive Date: 20211020
  Receipt Date: 20211020
  Transmission Date: 20220303
  Serious: Yes (Hospitalization)
  Sender: FDA-Public Use
  Company Number: None

PATIENT
  Age: 85 Year
  Sex: Female

DRUGS (2)
  1. TRAMADOL [Suspect]
     Active Substance: TRAMADOL
     Indication: Cervical radiculopathy
     Dosage: 200 MILLIGRAM, QD
     Route: 048
     Dates: start: 20210211, end: 20210213
  2. AMITRIPTYLINE HYDROCHLORIDE [Suspect]
     Active Substance: AMITRIPTYLINE HYDROCHLORIDE
     Indication: Product used for unknown indication
     Dosage: 10 GTT DROPS, QD, 10 GOUTTES PAR JOUR
     Route: 048
     Dates: start: 20210208, end: 20210213

REACTIONS (3)
  - Fall [Recovering/Resolving]
  - Mydriasis [Recovering/Resolving]
  - Confusional state [Recovering/Resolving]

NARRATIVE: CASE EVENT DATE: 20210213
